FAERS Safety Report 9639162 (Version 1)
Quarter: 2013Q4

REPORT INFORMATION
  Report Type: Spontaneous
  Country: GR (occurrence: GR)
  Receive Date: 20131022
  Receipt Date: 20131022
  Transmission Date: 20140711
  Serious: Yes (Hospitalization)
  Sender: FDA-Public Use
  Company Number: GR-TAKEDA-2013TUS001604

PATIENT
  Sex: Male

DRUGS (1)
  1. ADENURIC [Suspect]
     Indication: HYPERURICAEMIA
     Dosage: UNK
     Route: 065
     Dates: end: 201308

REACTIONS (1)
  - Nephritis [Recovered/Resolved]
